FAERS Safety Report 4304476-X (Version None)
Quarter: 2004Q1

REPORT INFORMATION
  Report Type: 
  Country: None (occurrence: None)
  Receive Date: 20040224
  Receipt Date: 20040213
  Transmission Date: 20041129
  Serious: Yes (Hospitalization)
  Sender: FDA-Public Use
  Company Number: 2004PK00344

PATIENT
  Age: 57 Year
  Sex: Female
  Weight: 49 kg

DRUGS (11)
  1. METOPROLOL SUCCINATE [Suspect]
     Indication: MYOCARDIAL ISCHAEMIA
     Dosage: 100 MG DAILY PO
     Route: 048
     Dates: start: 20020701, end: 20031207
  2. SEROPRAM [Suspect]
     Indication: DEPRESSION
     Dosage: 20 MG DAILY PO
     Route: 048
     Dates: start: 20031126, end: 20031210
  3. LIVIAL [Concomitant]
  4. LORAZEPAM [Concomitant]
  5. HALDOL [Concomitant]
  6. SOLIAN [Concomitant]
  7. PRAVASTATIN SODIUM [Concomitant]
  8. STILNOX [Concomitant]
  9. ASPIRIN [Concomitant]
  10. MODURETIC ^MSD^ [Concomitant]
  11. SEROQUEL [Concomitant]

REACTIONS (6)
  - BRADYCARDIA [None]
  - DRUG INTERACTION POTENTIATION [None]
  - ELECTROCARDIOGRAM QT PROLONGED [None]
  - HYPOTENSION [None]
  - PSYCHOTIC DISORDER [None]
  - VERTIGO [None]
